FAERS Safety Report 4539376-3 (Version None)
Quarter: 2004Q4

REPORT INFORMATION
  Report Type: 
  Country: None (occurrence: None)
  Receive Date: 20041222
  Receipt Date: 20041125
  Transmission Date: 20050328
  Serious: Yes (Hospitalization)
  Sender: FDA-Public Use
  Company Number: 2004102338

PATIENT
  Age: 54 Year
  Sex: Female

DRUGS (11)
  1. BEXTRA [Suspect]
     Indication: ILL-DEFINED DISORDER
     Dosage: 40 MG (20 MG, 2 IN 1 D), ORAL
     Route: 048
     Dates: start: 20040101, end: 20041001
  2. AMITRIPTYLINE HYDROCHLORIDE [Concomitant]
  3. ALPRAZOLAM [Concomitant]
  4. POTASSIUM CHLORIDE [Concomitant]
  5. PROGESTERONE [Concomitant]
  6. ESTRADIOL [Concomitant]
  7. QUININE (QUININE) [Concomitant]
  8. SENNA FRUIT (SENNA FRUIT) [Concomitant]
  9. OXYCODONE HCL [Concomitant]
  10. OXYCODONE HYDROCHLORIDE AND ACETAMINOPHEN [Concomitant]
  11. NITROGLYCERIN [Concomitant]

REACTIONS (3)
  - ABASIA [None]
  - CARDIAC DISORDER [None]
  - OEDEMA [None]
